FAERS Safety Report 6403401-5 (Version None)
Quarter: 2009Q4

REPORT INFORMATION
  Report Type: 
  Country: None (occurrence: None)
  Receive Date: 20091016
  Receipt Date: 20091012
  Transmission Date: 20100525
  Serious: Yes (Death, Hospitalization)
  Sender: FDA-Public Use
  Company Number: US-BRISTOL-MYERS SQUIBB COMPANY-14778393

PATIENT
  Age: 54 Year
  Sex: Male
  Weight: 68 kg

DRUGS (6)
  1. DASATINIB [Suspect]
     Indication: NON-SMALL CELL LUNG CANCER
     Route: 048
     Dates: start: 20090913, end: 20090923
  2. MS CONTIN [Concomitant]
  3. OXYCODONE [Concomitant]
     Dosage: 1DOSGEFORM=10-20MG,Q4H
  4. COMPAZINE [Concomitant]
     Dosage: Q4H
  5. ZOFRAN [Concomitant]
  6. POTASSIUM PHOSPHATES [Concomitant]
     Route: 048

REACTIONS (9)
  - CACHEXIA [None]
  - DECREASED APPETITE [None]
  - DEHYDRATION [None]
  - HAEMATOCRIT DECREASED [None]
  - HAEMOGLOBIN DECREASED [None]
  - HYPOCALCAEMIA [None]
  - MALIGNANT NEOPLASM PROGRESSION [None]
  - MALNUTRITION [None]
  - NON-SMALL CELL LUNG CANCER [None]
